FAERS Safety Report 21173761 (Version 1)
Quarter: 2022Q3

REPORT INFORMATION
  Report Type: Spontaneous
  Country: US (occurrence: US)
  Receive Date: 20220804
  Receipt Date: 20220804
  Transmission Date: 20221027
  Serious: No
  Sender: FDA-Public Use
  Company Number: US-PERRIGO-22US001409

PATIENT
  Age: 2 Year
  Sex: Male
  Weight: 12.698 kg

DRUGS (1)
  1. LORATADINE [Suspect]
     Active Substance: LORATADINE
     Indication: Accidental exposure to product
     Dosage: 10 MG, SINGLE
     Route: 048
     Dates: start: 20220131, end: 20220131

REACTIONS (1)
  - Accidental exposure to product [Recovered/Resolved]

NARRATIVE: CASE EVENT DATE: 20220131
